FAERS Safety Report 7138539-0 (Version None)
Quarter: 2010Q4

REPORT INFORMATION
  Report Type: 
  Country: None (occurrence: None)
  Receive Date: 20101206
  Receipt Date: 20101126
  Transmission Date: 20110411
  Serious: Yes (Death, Other)
  Sender: FDA-Public Use
  Company Number: JP-ELI_LILLY_AND_COMPANY-JP201011004953

PATIENT
  Sex: Male
  Weight: 76.6 kg

DRUGS (13)
  1. ALIMTA [Suspect]
     Indication: LUNG ADENOCARCINOMA RECURRENT
     Dosage: 500 MG/M2, OTHER
     Route: 042
     Dates: start: 20101102, end: 20101102
  2. PANVITAN [Concomitant]
     Dosage: 1 G, UNK
     Dates: start: 20101020
  3. CYANOCOBALAMIN [Concomitant]
     Dosage: 1 MG, DAILY (1/D)
     Route: 030
     Dates: start: 20101020
  4. SEROTONE [Concomitant]
     Indication: PROPHYLAXIS OF NAUSEA AND VOMITING
     Dosage: 10 MG, UNK
     Route: 042
     Dates: start: 20101102, end: 20101102
  5. BETAMETHASONE [Concomitant]
     Indication: PROPHYLAXIS OF NAUSEA AND VOMITING
     Dosage: 8 MG, UNK
     Dates: start: 20101102, end: 20101102
  6. DIART [Concomitant]
     Dosage: 30 MG, UNK
     Route: 048
  7. AMLODIPINE [Concomitant]
     Indication: HYPERTENSION
     Route: 048
     Dates: start: 20100203
  8. BLOPRESS [Concomitant]
     Indication: HYPERTENSION
     Dosage: 8 MG, UNK
     Route: 048
     Dates: start: 20100428
  9. SELARA [Concomitant]
     Indication: HYPERTENSION
     Dosage: 25 MG, UNK
     Route: 048
     Dates: start: 20091109
  10. ASPIRIN [Concomitant]
     Indication: ARTERIOSCLEROSIS CORONARY ARTERY
     Dosage: 100 MG, UNK
     Route: 048
     Dates: start: 20091109, end: 20101029
  11. LIVALO [Concomitant]
     Indication: DYSLIPIDAEMIA
     Dosage: 2 MG, UNK
     Route: 048
     Dates: start: 20091109
  12. MEDICON [Concomitant]
     Indication: COUGH
     Dosage: 45 MG, UNK
     Route: 048
     Dates: start: 20100921
  13. CODEINE PHOSPHATE                  /00012602/ [Concomitant]
     Indication: COUGH
     Route: 048
     Dates: start: 20101026

REACTIONS (2)
  - HAEMOPTYSIS [None]
  - LUNG DISORDER [None]
